FAERS Safety Report 11375435 (Version 1)
Quarter: 2015Q3

REPORT INFORMATION
  Report Type: Spontaneous
  Country: US (occurrence: US)
  Receive Date: 20150813
  Receipt Date: 20150813
  Transmission Date: 20151125
  Serious: Yes (Life-Threatening, Other)
  Sender: FDA-Public Use
  Company Number: US-ELI_LILLY_AND_COMPANY-US201508003525

PATIENT
  Sex: Female

DRUGS (2)
  1. HUMALOG [Suspect]
     Active Substance: INSULIN LISPRO
     Indication: TYPE 2 DIABETES MELLITUS
     Dosage: UNK, PRN
     Route: 065
  2. HUMULIN 70/30 [Suspect]
     Active Substance: INSULIN HUMAN
     Indication: TYPE 2 DIABETES MELLITUS
     Dosage: 35 U, BID
     Route: 065

REACTIONS (12)
  - Cardiac arrest [Unknown]
  - Road traffic accident [Unknown]
  - Rib fracture [Unknown]
  - Carpal tunnel syndrome [Unknown]
  - Road traffic accident [Unknown]
  - Concussion [Unknown]
  - Injection site pain [Unknown]
  - Face injury [Unknown]
  - Road traffic accident [Unknown]
  - Multiple sclerosis [Unknown]
  - Intervertebral disc disorder [Not Recovered/Not Resolved]
  - Road traffic accident [Unknown]

NARRATIVE: CASE EVENT DATE: 200306
